FAERS Safety Report 5033952-X (Version None)
Quarter: 2006Q2

REPORT INFORMATION
  Report Type: 
  Country: None (occurrence: None)
  Receive Date: 20060626
  Receipt Date: 20060613
  Transmission Date: 20061013
  Serious: Yes (Other)
  Sender: FDA-Public Use
  Company Number: US-JNJFOC-20060602910

PATIENT
  Sex: Female
  Weight: 59.42 kg

DRUGS (10)
  1. REMICADE [Suspect]
     Route: 042
  2. REMICADE [Suspect]
     Route: 042
  3. REMICADE [Suspect]
     Indication: RHEUMATOID ARTHRITIS
     Route: 042
  4. ACTONEL [Concomitant]
  5. AVISTA [Concomitant]
  6. PREDNISONE [Concomitant]
  7. DILANTIN [Concomitant]
  8. METHOTREXATE [Concomitant]
  9. LODINE [Concomitant]
  10. ORUVAIL [Concomitant]

REACTIONS (1)
  - HODGKIN'S DISEASE MIXED CELLULARITY STAGE UNSPECIFIED [None]
